FAERS Safety Report 21157847 (Version 6)
Quarter: 2022Q4

REPORT INFORMATION
  Report Type: Report from Study
  Country: BR (occurrence: BR)
  Receive Date: 20220801
  Receipt Date: 20221012
  Transmission Date: 20230112
  Serious: Yes (Death, Other)
  Sender: FDA-Public Use
  Company Number: BR-NOVARTISPH-NVSC2022BR171943

PATIENT
  Age: 44 Year
  Sex: Female
  Weight: 58 kg

DRUGS (1)
  1. CRIZANLIZUMAB [Suspect]
     Active Substance: CRIZANLIZUMAB
     Indication: Pain
     Dosage: 290 MG, QMO
     Route: 065
     Dates: start: 20210602, end: 20220504

REACTIONS (2)
  - Death [Fatal]
  - Severe acute respiratory syndrome [Unknown]

NARRATIVE: CASE EVENT DATE: 20220606
